FAERS Safety Report 20999300 (Version 1)
Quarter: 2022Q2

REPORT INFORMATION
  Report Type: Report from Study
  Country: DE (occurrence: None)
  Receive Date: 20220623
  Receipt Date: 20220623
  Transmission Date: 20220721
  Serious: Yes (Hospitalization)
  Sender: FDA-Public Use
  Company Number: DE-ROCHE-3118157

PATIENT
  Age: 44 Year
  Sex: Female
  Weight: 74 kg

DRUGS (9)
  1. ATEZOLIZUMAB [Suspect]
     Active Substance: ATEZOLIZUMAB
     Indication: Triple negative breast cancer
     Dosage: ON 13/MAY/2022, DATE OF LAST DOSE PRIOR TO SAE.
     Route: 041
     Dates: start: 20220422
  2. PACLITAXEL [Suspect]
     Active Substance: PACLITAXEL
     Indication: Triple negative breast cancer
     Dosage: ON 13/MAY/2022, DATE OF LAST DOSE PRIOR TO SAE
     Route: 042
     Dates: start: 20220422
  3. CARBOPLATIN [Suspect]
     Active Substance: CARBOPLATIN
     Indication: Triple negative breast cancer
     Dosage: ON 13/MAY/2022, DATE OF LAST DOSE PRIOR TO SAE
     Route: 042
     Dates: start: 20220422
  4. IBUPROFEN [Concomitant]
     Active Substance: IBUPROFEN
     Dates: start: 20220421
  5. BENZYDAMINE HYDROCHLORIDE [Concomitant]
     Active Substance: BENZYDAMINE HYDROCHLORIDE
     Dates: start: 20220421
  6. SELENASE [Concomitant]
     Dates: start: 20220421
  7. VIGANTOL [Concomitant]
     Dosage: 1000 IE
     Dates: start: 20220421
  8. LEVOTHYROXINE SODIUM [Concomitant]
     Active Substance: LEVOTHYROXINE SODIUM
  9. AMPHOTERICIN B [Concomitant]
     Active Substance: AMPHOTERICIN B
     Dates: start: 20220514

REACTIONS (1)
  - Febrile infection [Recovered/Resolved]

NARRATIVE: CASE EVENT DATE: 20220514
